FAERS Safety Report 6040243-7 (Version None)
Quarter: 2009Q1

REPORT INFORMATION
  Report Type: 
  Country: None (occurrence: None)
  Receive Date: 20090116
  Receipt Date: 20080609
  Transmission Date: 20090719
  Serious: No
  Sender: FDA-Public Use
  Company Number: US-BRISTOL-MYERS SQUIBB COMPANY-14053136

PATIENT
  Age: 52 Year
  Sex: Female

DRUGS (4)
  1. ABILIFY [Suspect]
     Dosage: REINTRODUCED AT LOWERED DOSE
     Route: 048
  2. NEURONTIN [Concomitant]
  3. XANAX [Concomitant]
  4. LAMICTAL [Concomitant]

REACTIONS (1)
  - DYSPNOEA [None]
